FAERS Safety Report 6633696-4 (Version None)
Quarter: 2010Q1

REPORT INFORMATION
  Report Type: 
  Country: None (occurrence: None)
  Receive Date: 20100314
  Receipt Date: 20100304
  Transmission Date: 20100710
  Serious: Yes (Hospitalization)
  Sender: FDA-Public Use
  Company Number: CA-JNJFOC-20090900371

PATIENT
  Sex: Male
  Weight: 89 kg

DRUGS (10)
  1. REMICADE [Suspect]
     Indication: CROHN'S DISEASE
     Route: 042
  2. REMICADE [Suspect]
     Dosage: ALSO REPORTED AS 5 MG/KG.
     Route: 042
  3. REMICADE [Suspect]
     Route: 042
  4. REMICADE [Suspect]
     Dosage: 5 INFUSIONS ONLY
     Route: 042
  5. REMICADE [Suspect]
     Route: 042
  6. HYDROCORTISONE [Concomitant]
     Indication: PREMEDICATION
     Route: 042
  7. TRAMADOL HCL [Concomitant]
  8. PENTASA [Concomitant]
  9. TYLENOL-500 [Concomitant]
     Indication: PREMEDICATION
     Route: 048
  10. SOLU-CORTEF [Concomitant]
     Route: 042

REACTIONS (3)
  - ABASIA [None]
  - MUSCLE SPASMS [None]
  - VOMITING [None]
